FAERS Safety Report 9338976 (Version 1)
Quarter: 2013Q2

REPORT INFORMATION
  Report Type: Spontaneous
  Country: GB (occurrence: GB)
  Receive Date: 20130610
  Receipt Date: 20130610
  Transmission Date: 20140414
  Serious: Yes (Other)
  Sender: FDA-Public Use
  Company Number: PHHY2013GB056356

PATIENT
  Age: 69 Year
  Sex: Male

DRUGS (8)
  1. INDAPAMIDE [Suspect]
     Indication: HYPERTENSION
     Dosage: 1.5 MG, QD
     Route: 048
     Dates: start: 20130502, end: 20130507
  2. LOSARTAN [Concomitant]
  3. DOXAZOSIN [Concomitant]
  4. ATORVASTATIN [Concomitant]
  5. ASPIRIN [Concomitant]
  6. OMEPRAZOLE [Concomitant]
  7. NIFEDIPRESS MR [Concomitant]
  8. ATENOLOL [Concomitant]

REACTIONS (1)
  - Visual impairment [Recovered/Resolved]
